FAERS Safety Report 5813303-0 (Version None)
Quarter: 2008Q3

REPORT INFORMATION
  Report Type: 
  Country: None (occurrence: None)
  Receive Date: 20080717
  Receipt Date: 20080709
  Transmission Date: 20090109
  Serious: Yes (Hospitalization)
  Sender: FDA-Public Use
  Company Number: GB-BRISTOL-MYERS SQUIBB COMPANY-14264725

PATIENT
  Age: 69 Year
  Sex: Male
  Weight: 90 kg

DRUGS (4)
  1. MITOMYCIN-C [Suspect]
     Indication: BLADDER CANCER
     Dosage: ROUTE-IB, 2ND INSTILLATION ON 07JUL08,FORM-INJECTION,1ST INSTILLATION ON 30JUN08, POSTOP ON 08APR08
     Route: 043
     Dates: start: 20080707, end: 20080707
  2. FELODIPINE [Concomitant]
  3. BISOPROLOL FUMARATE [Concomitant]
  4. LISINOPRIL [Concomitant]

REACTIONS (3)
  - HYPERHIDROSIS [None]
  - PYREXIA [None]
  - RASH [None]
